FAERS Safety Report 25142036 (Version 5)
Quarter: 2025Q4

REPORT INFORMATION
  Report Type: Spontaneous
  Country: JP (occurrence: JP)
  Receive Date: 20250331
  Receipt Date: 20251210
  Transmission Date: 20260118
  Serious: Yes (Hospitalization, Other)
  Sender: MERCK SHARP & DOHME LLC
  Company Number: JP-MSD-M2024-48948

PATIENT
  Age: 71 Year
  Sex: Male

DRUGS (2)
  1. KEYTRUDA [Suspect]
     Active Substance: PEMBROLIZUMAB
     Indication: Bladder transitional cell carcinoma stage IV
     Dosage: DOSE DESCRIPTION : 200 MILLIGRAM, Q3W?DAILY DOSE : 9.4 MILLIGRAM?REGIMEN DOSE : 200  MILLIGRAM
     Route: 041
     Dates: start: 20241113, end: 20250212
  2. PADCEV [Suspect]
     Active Substance: ENFORTUMAB VEDOTIN-EJFV
     Indication: Bladder transitional cell carcinoma stage IV
     Dosage: DOSE DESCRIPTION : 1.25 MILLIGRAM/KILOGRAM (ADMINISTERED EVERY 3 WEEKS, ON DAY 1 AND DAY 8)
     Route: 041
     Dates: start: 20241113, end: 20250212

REACTIONS (4)
  - Myocardial infarction [Recovering/Resolving]
  - Neuropathy peripheral [Recovering/Resolving]
  - Erythema [Recovering/Resolving]
  - Skin erosion [Unknown]

NARRATIVE: CASE EVENT DATE: 20241120
